FAERS Safety Report 10137760 (Version 1)
Quarter: 2014Q2

REPORT INFORMATION
  Report Type: Spontaneous
  Country: US (occurrence: US)
  Receive Date: 20140429
  Receipt Date: 20140429
  Transmission Date: 20141212
  Serious: Yes (Hospitalization)
  Sender: FDA-Public Use
  Company Number: US-ABBVIE-14P-163-1227894-00

PATIENT
  Age: 49 Year
  Sex: Male
  Weight: 124.4 kg

DRUGS (5)
  1. HUMIRA [Suspect]
     Indication: PSORIASIS
     Dates: start: 201403, end: 20140405
  2. PLAVIX [Concomitant]
     Indication: MYOCARDIAL INFARCTION
  3. ASPIRIN [Concomitant]
     Indication: MYOCARDIAL INFARCTION
  4. UNKNOWN HIGH BLOOD PRESSURE MEDICATION [Concomitant]
     Indication: HYPERTENSION
  5. UNKNOWN HIGH CHOLESTEROL MEDICATION [Concomitant]
     Indication: BLOOD CHOLESTEROL INCREASED

REACTIONS (3)
  - Diabetes mellitus [Not Recovered/Not Resolved]
  - Muscle spasms [Recovering/Resolving]
  - Thrombosis [Recovering/Resolving]
